FAERS Safety Report 10840753 (Version 1)
Quarter: 2015Q1

REPORT INFORMATION
  Report Type: Report from Study
  Country: US (occurrence: US)
  Receive Date: 20150220
  Receipt Date: 20150220
  Transmission Date: 20150721
  Serious: Yes (Hospitalization)
  Sender: FDA-Public Use
  Company Number: US-ABBVIE-14P-163-1243963-00

PATIENT
  Sex: Male
  Weight: 96.25 kg

DRUGS (6)
  1. DIABETES MEDICATION [Concomitant]
     Active Substance: UNSPECIFIED INGREDIENT
     Indication: DIABETES MELLITUS
  2. IBUPROFEN. [Concomitant]
     Active Substance: IBUPROFEN
     Indication: PRODUCT USED FOR UNKNOWN INDICATION
  3. HUMIRA [Suspect]
     Active Substance: ADALIMUMAB
     Indication: PSORIATIC ARTHROPATHY
     Dates: start: 2010, end: 2012
  4. HUMIRA [Suspect]
     Active Substance: ADALIMUMAB
     Dates: start: 201404
  5. LEFLUNOMIDE. [Suspect]
     Active Substance: LEFLUNOMIDE
     Indication: PSORIATIC ARTHROPATHY
  6. ANCEF [Suspect]
     Active Substance: CEFAZOLIN SODIUM
     Indication: PRODUCT USED FOR UNKNOWN INDICATION

REACTIONS (9)
  - Rash [Recovered/Resolved]
  - Urticaria [Recovered/Resolved]
  - Localised infection [Recovered/Resolved]
  - Chondrocalcinosis pyrophosphate [Unknown]
  - Pain in extremity [Recovered/Resolved]
  - Arthritis bacterial [Unknown]
  - Skin ulcer [Unknown]
  - Immunodeficiency [Unknown]
  - Staphylococcal infection [Recovered/Resolved]

NARRATIVE: CASE EVENT DATE: 2012
